FAERS Safety Report 6403883 (Version 2)
Quarter: 2012Q4

REPORT INFORMATION
  Report Type: 
  Country: BE (occurrence: BE)
  Receive Date: 20070831
  Receipt Date: 20120828
  Transmission Date: 20130627
  Serious: Yes (Other)
  Sender: FDA-Public Use
  Company Number: BE-ELI_LILLY_AND_COMPANY-BE200708004238

PATIENT
  Age: 63 None
  Sex: Female
  Weight: 80 kg

DRUGS (5)
  1. FORSTEO [Suspect]
     Indication: OSTEOPOROSIS
     Dosage: 20 ug, daily (1/D)
     Route: 058
     Dates: start: 20061228
  2. GLUCOPHAGE [Concomitant]
     Indication: DIABETES MELLITUS
     Dosage: UNK
  3. IMAP [Concomitant]
     Indication: DEPRESSION
     Dosage: UNK
  4. DUROGESIC [Concomitant]
     Indication: PAIN
     Dosage: UNK
  5. CONTRAMAL [Concomitant]
     Indication: PAIN
     Dosage: UNK

REACTIONS (2)
  - Fractured sacrum [Not Recovered/Not Resolved]
  - Fall [Not Recovered/Not Resolved]
